FAERS Safety Report 15497419 (Version 1)
Quarter: 2018Q4

REPORT INFORMATION
  Report Type: Spontaneous
  Country: US (occurrence: US)
  Receive Date: 20181015
  Receipt Date: 20181015
  Transmission Date: 20190205
  Serious: No
  Sender: FDA-Public Use
  Company Number: US-PFIZER INC-2018413617

PATIENT
  Sex: Female

DRUGS (1)
  1. GABAPENTIN. [Suspect]
     Active Substance: GABAPENTIN
     Dosage: 75 MG, UNK

REACTIONS (3)
  - Drug ineffective [Unknown]
  - Bladder disorder [Unknown]
  - Malaise [Unknown]

NARRATIVE: CASE EVENT DATE: 20181008
